FAERS Safety Report 11365507 (Version 1)
Quarter: 2015Q3

REPORT INFORMATION
  Report Type: Spontaneous
  Country: FR (occurrence: FR)
  Receive Date: 20150811
  Receipt Date: 20150811
  Transmission Date: 20151125
  Serious: Yes (Hospitalization)
  Sender: FDA-Public Use
  Company Number: FR-PFIZER INC-2015262355

PATIENT
  Age: 34 Year
  Sex: Male
  Weight: 69 kg

DRUGS (12)
  1. VANCOMYCIN MYLAN [Suspect]
     Active Substance: VANCOMYCIN
     Dosage: UNK
     Route: 042
     Dates: start: 20150707, end: 20150720
  2. CORTANCYL [Concomitant]
     Active Substance: PREDNISONE
     Dosage: 10 MG, DAILY
  3. INEXIUM [Concomitant]
     Active Substance: ESOMEPRAZOLE
     Indication: HELICOBACTER GASTRITIS
     Dosage: UNK
  4. DALACINE [Suspect]
     Active Substance: CLINDAMYCIN HYDROCHLORIDE
     Dosage: UNK
     Route: 042
     Dates: start: 20150716, end: 20150721
  5. RAMIPRIL. [Concomitant]
     Active Substance: RAMIPRIL
     Indication: CARDIAC HYPERTROPHY
     Dosage: UNK
  6. COLCHICINE OPOCALCIUM [Concomitant]
     Active Substance: COLCHICINE
     Dosage: UNK
     Dates: start: 20150706, end: 20150717
  7. PIPERACILLIN AND TAZOBACTAM [Suspect]
     Active Substance: PIPERACILLIN SODIUM\TAZOBACTAM SODIUM
     Dosage: UNK
     Route: 042
     Dates: start: 20150702, end: 20150720
  8. SKENAN [Concomitant]
     Active Substance: MORPHINE SULFATE
     Dosage: UNK
  9. IMUREL /00001501/ [Concomitant]
     Active Substance: AZATHIOPRINE SODIUM
     Indication: DERMATOMYOSITIS
     Dosage: 150 MG, DAILY
     Dates: start: 2013, end: 20150718
  10. LOXEN LP [Concomitant]
     Active Substance: NICARDIPINE
     Indication: CARDIAC HYPERTROPHY
     Dosage: UNK
  11. EUPANTOL [Concomitant]
     Active Substance: PANTOPRAZOLE SODIUM
     Dosage: UNK
  12. DAKTARIN [Concomitant]
     Active Substance: MICONAZOLE NITRATE
     Dosage: UNK
     Dates: start: 20150715, end: 20150722

REACTIONS (1)
  - Pyrexia [Recovered/Resolved]

NARRATIVE: CASE EVENT DATE: 20150716
